FAERS Safety Report 25578699 (Version 1)
Quarter: 2025Q3

REPORT INFORMATION
  Report Type: Spontaneous
  Country: US (occurrence: US)
  Receive Date: 20250718
  Receipt Date: 20250718
  Transmission Date: 20251020
  Serious: Yes (Other)
  Sender: RANBAXY
  Company Number: US-SUN PHARMACEUTICAL INDUSTRIES LTD-2025R1-516915

PATIENT
  Age: 48 Year
  Sex: Female

DRUGS (7)
  1. BACTRIM DS [Suspect]
     Active Substance: SULFAMETHOXAZOLE\TRIMETHOPRIM
     Indication: Mycobacterium fortuitum infection
     Dosage: BID
     Route: 065
     Dates: start: 20250116, end: 20250328
  2. BACTRIM DS [Suspect]
     Active Substance: SULFAMETHOXAZOLE\TRIMETHOPRIM
     Dosage: BID
     Route: 065
     Dates: start: 20250426, end: 20250601
  3. CIPROFLOXACIN [Suspect]
     Active Substance: CIPROFLOXACIN
     Indication: Mycobacterium fortuitum infection
     Dosage: 750 MILLIGRAM, BID
     Route: 065
     Dates: start: 20250211, end: 20250409
  4. DOXYCYCLINE [Suspect]
     Active Substance: DOXYCYCLINE
     Indication: Mycobacterium fortuitum infection
     Dosage: 100 MILLIGRAM, BID
     Route: 065
     Dates: start: 20250109, end: 20250210
  5. OMADACYCLINE [Suspect]
     Active Substance: OMADACYCLINE
     Indication: Mycobacterium fortuitum infection
     Route: 065
     Dates: start: 20250410, end: 20250414
  6. CEFOXITIN [Suspect]
     Active Substance: CEFOXITIN SODIUM
     Indication: Mycobacterium fortuitum infection
     Route: 042
     Dates: start: 201703, end: 202403
  7. IMIPENEM [Suspect]
     Active Substance: IMIPENEM
     Indication: Mycobacterium fortuitum infection
     Route: 042
     Dates: start: 202402, end: 20250305

REACTIONS (2)
  - Cytopenia [Unknown]
  - Hypoglycaemia [Unknown]
